FAERS Safety Report 9474139 (Version 2)
Quarter: 2013Q3

REPORT INFORMATION
  Report Type: Report from Study
  Country: US (occurrence: US)
  Receive Date: 20130823
  Receipt Date: 20130904
  Transmission Date: 20140515
  Serious: Yes (Hospitalization, Other)
  Sender: FDA-Public Use
  Company Number: US-ACTELION-A-NJ2013-87187

PATIENT
  Age: 49 Year
  Sex: Female

DRUGS (9)
  1. TRACLEER [Suspect]
     Indication: PULMONARY ARTERIAL HYPERTENSION
     Dosage: 62.5 MG, BID
     Route: 048
  2. POTASSIUM [Concomitant]
     Dosage: 20 MEQ, QD
  3. VITAMIN D [Concomitant]
     Dosage: 1000 U, TWICE MONTHLY
  4. LORTAB [Concomitant]
     Dosage: 10/500 MG, PRN
  5. PROZAC [Concomitant]
     Dosage: 10 MG, QD
  6. PREDNISONE [Concomitant]
     Dosage: 10 MG, BID
  7. CELLCEPT [Concomitant]
     Dosage: 1000 MG, BID
  8. PROTONIX [Concomitant]
     Dosage: 40 MG, QD
  9. TRAZODONE [Concomitant]
     Dosage: 1 TABLET NIGHTLY

REACTIONS (6)
  - Cystitis [Recovering/Resolving]
  - Dehydration [Recovering/Resolving]
  - Pyrexia [Recovering/Resolving]
  - Flank pain [Recovering/Resolving]
  - Dysuria [Recovering/Resolving]
  - Abdominal discomfort [Recovering/Resolving]
